FAERS Safety Report 7417501-4 (Version None)
Quarter: 2011Q2

REPORT INFORMATION
  Report Type: 
  Country: None (occurrence: None)
  Receive Date: 20110412
  Receipt Date: 20110412
  Transmission Date: 20111010
  Serious: Yes (Hospitalization)
  Sender: FDA-Public Use
  Company Number: None

PATIENT
  Sex: Male
  Weight: 18.4 kg

DRUGS (5)
  1. CYCLOPHOSPHAMIDE [Suspect]
     Dosage: 2700 MG
  2. MESNA [Suspect]
     Dosage: 1620 MG
  3. VINCRISTINE SULFATE [Suspect]
     Dosage: 6.6 MG
  4. G-CSF (FILGRASTIM, AMGEN) [Suspect]
     Dosage: 2400 MG
  5. DACTINOMYCIN [Suspect]
     Dosage: 2.4 MG

REACTIONS (3)
  - ANAEMIA [None]
  - THROMBOCYTOPENIA [None]
  - PYREXIA [None]
